FAERS Safety Report 19903474 (Version 1)
Quarter: 2021Q4

REPORT INFORMATION
  Report Type: Spontaneous
  Country: SI (occurrence: SI)
  Receive Date: 20211001
  Receipt Date: 20211001
  Transmission Date: 20220303
  Serious: Yes (Hospitalization, Other)
  Sender: FDA-Public Use
  Company Number: SI-AMGEN-SVNSP2021149765

PATIENT
  Age: 67 Year
  Sex: Female

DRUGS (3)
  1. CARFILZOMIB [Suspect]
     Active Substance: CARFILZOMIB
     Indication: Product used for unknown indication
     Dosage: UNK
     Route: 065
  2. CARFILZOMIB [Suspect]
     Active Substance: CARFILZOMIB
     Dosage: 20 MILLIGRAM/SQ. METER, QWK DAY 1 OF FIRST CYCLE, THEN 70 MG/M2 I.V. WEEKLY
     Route: 065
     Dates: start: 202105
  3. DEXAMETHASONE [Suspect]
     Active Substance: DEXAMETHASONE
     Indication: Product used for unknown indication
     Dosage: 40 MILLIGRAM DAYS 1, 8, 15, AND 22
     Route: 065

REACTIONS (4)
  - Oesophageal candidiasis [Unknown]
  - Pneumonia bacterial [Unknown]
  - Herpes zoster reactivation [Unknown]
  - Hypertension [Unknown]

NARRATIVE: CASE EVENT DATE: 20160701
